FAERS Safety Report 6029015-7 (Version None)
Quarter: 2009Q1

REPORT INFORMATION
  Report Type: 
  Country: None (occurrence: None)
  Receive Date: 20090106
  Receipt Date: 20081231
  Transmission Date: 20090719
  Serious: Yes (Hospitalization)
  Sender: FDA-Public Use
  Company Number: US-RB-007833-09

PATIENT
  Age: 79 Year
  Sex: Female

DRUGS (1)
  1. DELSYM ADULT [Suspect]
     Dosage: FULL BOTTLE TAKEN
     Route: 048
     Dates: start: 20081226

REACTIONS (3)
  - ACCIDENTAL OVERDOSE [None]
  - FEELING ABNORMAL [None]
  - FEELING DRUNK [None]
